FAERS Safety Report 8837703 (Version 1)
Quarter: 2012Q4

REPORT INFORMATION
  Report Type: 
  Country: US (occurrence: US)
  Receive Date: 20121012
  Receipt Date: 20121012
  Transmission Date: 20130627
  Serious: No
  Sender: FDA-Public Use
  Company Number: US-B.I. PHARMACEUTICALS,INC./RIDGEFIELD-2012-BP-23949BP

PATIENT
  Age: 84 Year
  Sex: Male
  Weight: 95 kg

DRUGS (5)
  1. SPIRIVA [Suspect]
     Indication: RESPIRATORY RATE DECREASED
     Dosage: 18 mcg
     Route: 055
     Dates: start: 20120917, end: 20120927
  2. EXFORGE [Concomitant]
     Indication: HYPERTENSION
     Route: 048
     Dates: start: 2002
  3. LIPITOR [Concomitant]
     Indication: BLOOD CHOLESTEROL INCREASED
     Dosage: 40 mg
     Route: 048
     Dates: start: 2002
  4. OMEPRAZOLE [Concomitant]
     Indication: ABDOMINAL DISCOMFORT
     Dosage: 20 mg
     Route: 048
     Dates: start: 2009
  5. BABY ASPIRIN [Concomitant]
     Dosage: 81 mg
     Route: 048
     Dates: start: 1999

REACTIONS (2)
  - Increased upper airway secretion [Not Recovered/Not Resolved]
  - Cough [Not Recovered/Not Resolved]
